FAERS Safety Report 8542524-1 (Version None)
Quarter: 2012Q3

REPORT INFORMATION
  Report Type: 
  Country: None (occurrence: None)
  Receive Date: 20120726
  Receipt Date: 20110810
  Transmission Date: 20120928
  Serious: Yes (Other)
  Sender: FDA-Public Use
  Company Number: US-ASTRAZENECA-2011SE48269

PATIENT
  Age: 46 Year
  Sex: Male
  Weight: 64.4 kg

DRUGS (5)
  1. SEROQUEL [Suspect]
     Indication: DEPRESSION
     Route: 048
     Dates: start: 20110201
  2. NORVIR [Concomitant]
  3. TRUVADA [Concomitant]
  4. SEROQUEL [Suspect]
     Indication: SLEEP DISORDER
     Route: 048
     Dates: start: 20110201
  5. PAROXETINE [Concomitant]

REACTIONS (2)
  - CONVULSION [None]
  - OFF LABEL USE [None]
